FAERS Safety Report 10271253 (Version 1)
Quarter: 2014Q1

REPORT INFORMATION
  Report Type: Spontaneous
  Country: US (occurrence: None)
  Receive Date: 20140306
  Receipt Date: 20140306
  Transmission Date: 20141002
  Serious: Yes (Other)
  Sender: FDA-Public Use
  Company Number: 163-21880-13081561

PATIENT
  Age: 83 Year
  Sex: Female
  Weight: 68 kg

DRUGS (6)
  1. REVLIMID [Suspect]
     Indication: MYELODYSPLASTIC SYNDROME
     Dosage: 5 MG, 1 IN 1 D, PO
     Route: 048
     Dates: start: 20130510
  2. FERROUS SULFATE ( FERROUS SULFATE) (UNKNOWN) [Concomitant]
  3. TOPROL XL ( METOPROLOL SUCCINATE) (UNKNOWN) [Concomitant]
  4. VITAMIN D3 ( COLECALCIFEROL) (UNKNOWN) [Concomitant]
  5. MULTIVITAMINS ( MULTIVITAMINS) (UNKNOWN) [Concomitant]
  6. NORCO ( VICODIN) (UNKNOWN) [Concomitant]

REACTIONS (1)
  - Oedema peripheral [None]
